FAERS Safety Report 22669434 (Version 2)
Quarter: 2024Q2

REPORT INFORMATION
  Report Type: Report from Study
  Country: IN (occurrence: IN)
  Receive Date: 20230704
  Receipt Date: 20240429
  Transmission Date: 20240715
  Serious: Yes (Other)
  Sender: FDA-Public Use
  Company Number: IN-SUN PHARMACEUTICAL INDUSTRIES LTD-2023R1-397289

PATIENT
  Sex: Female

DRUGS (2)
  1. CARBAMAZEPINE [Suspect]
     Active Substance: CARBAMAZEPINE
     Indication: Epilepsy
     Dosage: UNK
     Route: 065
  2. VALPROATE [Suspect]
     Active Substance: VALPROIC ACID
     Indication: Epilepsy
     Dosage: 200 MILLIGRAM
     Route: 065

REACTIONS (1)
  - Exposure during pregnancy [Unknown]
